FAERS Safety Report 9621526 (Version 1)
Quarter: 2013Q4

REPORT INFORMATION
  Report Type: Spontaneous
  Country: US (occurrence: None)
  Receive Date: 20131011
  Receipt Date: 20131011
  Transmission Date: 20140711
  Serious: Yes (Hospitalization)
  Sender: FDA-Public Use
  Company Number: None

PATIENT
  Age: 52 Year
  Sex: Female

DRUGS (1)
  1. CIMZIA [Suspect]
     Dosage: INJECT 400 MG UNDER THE SKIN AT WEEK 0, 2, AND 4 THEN START MAINTENANCE DOSE
     Dates: start: 20130729

REACTIONS (1)
  - Clostridial infection [None]
